FAERS Safety Report 15037850 (Version 5)
Quarter: 2021Q1

REPORT INFORMATION
  Report Type: Report from Study
  Country: CN (occurrence: CN)
  Receive Date: 20180620
  Receipt Date: 20210205
  Transmission Date: 20210419
  Serious: Yes (Death)
  Sender: FDA-Public Use
  Company Number: CN-AMGEN-CHNCT2018082958

PATIENT
  Age: 64 Year
  Sex: Male
  Weight: 60 kg

DRUGS (27)
  1. COMPOUND CHLORHEXIDINE GLUCONATE [Concomitant]
     Dosage: 10 MILLILITER
     Route: 050
     Dates: start: 20180606, end: 20180618
  2. PLATELETS [Concomitant]
     Active Substance: HUMAN PLATELET, ALLOGENIC
     Dosage: 1 UNK, UNK
     Route: 042
     Dates: start: 20180608, end: 20180616
  3. GLUTATHIONE [Concomitant]
     Active Substance: GLUTATHIONE
     Dosage: 2.4 GRAM
     Route: 042
     Dates: start: 20180528, end: 20180607
  4. POLYENE PHOSPHATIDYLCHOLINE [Concomitant]
     Active Substance: PHOSPHOLIPID
     Dosage: 930 MG, UNK
     Route: 042
     Dates: start: 20180607, end: 20180618
  5. ONDANSETRON [Concomitant]
     Active Substance: ONDANSETRON
     Dosage: 4 MG, UNK
     Route: 042
     Dates: start: 20180613, end: 20180618
  6. AMINOMETHYLBENZOIC ACID [Concomitant]
     Active Substance: AMINOMETHYLBENZOIC ACID
     Dosage: 0.4 G, UNK
     Route: 042
     Dates: start: 20180616, end: 20180618
  7. FLUCONAZOLE. [Concomitant]
     Active Substance: FLUCONAZOLE
     Dosage: 400 MILLIGRAM
     Dates: start: 20180529, end: 20180618
  8. THROMBIN [Concomitant]
     Active Substance: THROMBIN
     Dosage: 2000 UNK, UNK
     Route: 048
     Dates: start: 20180615, end: 20180618
  9. MEROPENEM. [Concomitant]
     Active Substance: MEROPENEM
     Dosage: 1 GRAM
     Route: 042
     Dates: start: 20180528, end: 20180618
  10. INDOMETHACIN. [Concomitant]
     Active Substance: INDOMETHACIN
     Dosage: 35?50 MILLIGRAM
     Route: 054
     Dates: start: 20180531, end: 20180617
  11. LINEZOLID. [Concomitant]
     Active Substance: LINEZOLID
     Dosage: 0.6 GRAM
     Route: 048
     Dates: start: 20180604, end: 20180614
  12. DEXAMETHASONE SODIUM PHOSPHATE. [Concomitant]
     Active Substance: DEXAMETHASONE SODIUM PHOSPHATE
     Dosage: 15 MG, UNK
     Route: 042
     Dates: start: 20180601, end: 20180601
  13. SODIUM BICARBONATE. [Concomitant]
     Active Substance: SODIUM BICARBONATE
     Dosage: 125 MILLILITER
     Route: 042
     Dates: start: 20180529, end: 20180618
  14. CYTARABINE. [Concomitant]
     Active Substance: CYTARABINE
     Dosage: 50 MG, UNK
     Route: 037
     Dates: start: 20180601, end: 20180601
  15. DIAZEPAM. [Concomitant]
     Active Substance: DIAZEPAM
     Dosage: 2.5 MILLIGRAM
     Route: 048
     Dates: start: 20180606, end: 20180618
  16. LEVOFLOXACIN. [Concomitant]
     Active Substance: LEVOFLOXACIN
     Dosage: 0.5 G, UNK
     Route: 048
     Dates: start: 20180614, end: 20180618
  17. BLINATUMOMAB [Suspect]
     Active Substance: BLINATUMOMAB
     Indication: B PRECURSOR TYPE ACUTE LEUKAEMIA
     Dosage: 28 MUG, QD
     Route: 042
     Dates: start: 20180606, end: 20180613
  18. DEXAMETHASONE. [Concomitant]
     Active Substance: DEXAMETHASONE
     Dosage: 5?20 MG, UNK
     Dates: start: 20180601, end: 20180613
  19. HUMAN ALBUMIN [Concomitant]
     Active Substance: ALBUMIN HUMAN
     Dosage: 10 G, UNK
     Route: 042
     Dates: start: 20180611, end: 20180613
  20. RED BLOOD CELLS, CONCENTRATED [Concomitant]
     Active Substance: HUMAN RED BLOOD CELL
     Dosage: 200?400 MILLILITER
     Route: 042
     Dates: start: 20180613, end: 20180618
  21. LACIDIPINE [Concomitant]
     Active Substance: LACIDIPINE
     Dosage: 4 MILLIGRAM
     Route: 048
     Dates: start: 20180528, end: 20180618
  22. VITAMIN C [Concomitant]
     Active Substance: ASCORBIC ACID
     Dosage: 2 GRAM
     Route: 042
     Dates: start: 20180529, end: 20180618
  23. VITAMIN B6 [Concomitant]
     Active Substance: PYRIDOXINE HYDROCHLORIDE
     Dosage: 0.2 GRAM
     Route: 042
     Dates: start: 20180529, end: 20180618
  24. OMEPRAZOLE SODIUM [Concomitant]
     Active Substance: OMEPRAZOLE SODIUM
     Dosage: 40 MG, UNK
     Route: 042
     Dates: start: 20180601, end: 20180618
  25. POTASSIUM CHLORIDE. [Concomitant]
     Active Substance: POTASSIUM CHLORIDE
     Dosage: 1 G, UNK
     Route: 048
     Dates: start: 20180531, end: 20180618
  26. PROMETHAZINE [Concomitant]
     Active Substance: PROMETHAZINE HYDROCHLORIDE
     Dosage: 12.5?25 MG, UNK
     Route: 030
     Dates: start: 20180608, end: 20180618
  27. VALSARTAN. [Concomitant]
     Active Substance: VALSARTAN
     Dosage: 80 MILLIGRAM
     Route: 048
     Dates: start: 20180528, end: 20180618

REACTIONS (1)
  - Cardiac arrest [Fatal]

NARRATIVE: CASE EVENT DATE: 20180618
